FAERS Safety Report 20720421 (Version 7)
Quarter: 2023Q1

REPORT INFORMATION
  Report Type: Spontaneous
  Country: US (occurrence: US)
  Receive Date: 20220418
  Receipt Date: 20230302
  Transmission Date: 20230418
  Serious: No
  Sender: FDA-Public Use
  Company Number: US-PFIZER INC-202200047634

PATIENT
  Age: 75 Year
  Sex: Female

DRUGS (4)
  1. IBRANCE [Suspect]
     Active Substance: PALBOCICLIB
     Indication: Breast cancer metastatic
     Dosage: 125 MG, CYCLIC (ONE PILL EVERY DAY FOR 3 WEEKS AND OFF THE FOURTH WEEK)
     Dates: start: 20211006
  2. IBRANCE [Suspect]
     Active Substance: PALBOCICLIB
     Dosage: 125 MG
     Dates: start: 20220914
  3. PROLIA [Concomitant]
     Active Substance: DENOSUMAB
     Indication: Bone loss
     Dosage: UNK
  4. LETROZOLE [Concomitant]
     Active Substance: LETROZOLE
     Dosage: 2.5 MG, DAILY

REACTIONS (9)
  - Full blood count decreased [Unknown]
  - Anaemia [Unknown]
  - Weight decreased [Recovering/Resolving]
  - Asthenia [Unknown]
  - Respiratory tract infection viral [Unknown]
  - Neuralgia [Unknown]
  - Respiratory disorder [Unknown]
  - Illness [Unknown]
  - Anxiety [Unknown]
